FAERS Safety Report 6442556-3 (Version None)
Quarter: 2009Q4

REPORT INFORMATION
  Report Type: 
  Country: None (occurrence: None)
  Receive Date: 20091112
  Receipt Date: 20091102
  Transmission Date: 20100525
  Serious: Yes (Hospitalization)
  Sender: FDA-Public Use
  Company Number: 2009SP033868

PATIENT
  Sex: Male

DRUGS (2)
  1. AVANZA                              (MIRTAZAPINE) [Suspect]
     Indication: DRUG USE FOR UNKNOWN INDICATION
     Dates: start: 20071203, end: 20080101
  2. VALIUM [Concomitant]

REACTIONS (5)
  - HERPES ZOSTER [None]
  - LOSS OF CONTROL OF LEGS [None]
  - OBSESSIVE-COMPULSIVE DISORDER [None]
  - POST-TRAUMATIC STRESS DISORDER [None]
  - WEIGHT INCREASED [None]
